FAERS Safety Report 7548514-X (Version None)
Quarter: 2011Q2

REPORT INFORMATION
  Report Type: 
  Country: None (occurrence: None)
  Receive Date: 20110615
  Receipt Date: 20110609
  Transmission Date: 20111010
  Serious: Yes (Other)
  Sender: FDA-Public Use
  Company Number: ES-SANOFI-AVENTIS-2011SA036474

PATIENT
  Age: 42 Year
  Sex: Female

DRUGS (1)
  1. FEXOFENADINE HCL [Suspect]
     Indication: URTICARIA
     Dosage: DOSE FORM- 82
     Route: 048
     Dates: start: 20110506, end: 20110509

REACTIONS (2)
  - CHEST DISCOMFORT [None]
  - DYSPNOEA [None]
